FAERS Safety Report 4697808-4 (Version None)
Quarter: 2005Q2

REPORT INFORMATION
  Report Type: 
  Country: None (occurrence: None)
  Receive Date: 20050623
  Receipt Date: 20050613
  Transmission Date: 20051028
  Serious: Yes (Hospitalization)
  Sender: FDA-Public Use
  Company Number: JP-JNJFOC-20050502672

PATIENT
  Sex: Female
  Weight: 70 kg

DRUGS (10)
  1. REMICADE [Suspect]
     Route: 042
  2. REMICADE [Suspect]
     Route: 042
  3. REMICADE [Suspect]
     Route: 042
  4. REMICADE [Suspect]
     Indication: RHEUMATOID ARTHRITIS
     Route: 042
  5. METHOTREXATE [Concomitant]
  6. PREDONISOLONE [Concomitant]
     Indication: RHEUMATOID ARTHRITIS
     Route: 049
  7. RHEUMATREX [Concomitant]
     Indication: RHEUMATOID ARTHRITIS
     Route: 049
  8. VOLTAREN [Concomitant]
     Indication: RHEUMATOID ARTHRITIS
     Route: 049
  9. MOVER [Concomitant]
     Indication: RHEUMATOID ARTHRITIS
     Route: 049
  10. FOLIAMIN [Concomitant]
     Route: 049

REACTIONS (7)
  - ABDOMINAL DISTENSION [None]
  - ASCITES [None]
  - DISORIENTATION [None]
  - DIZZINESS [None]
  - FACIAL PALSY [None]
  - MENINGITIS TUBERCULOUS [None]
  - PERITONEAL TUBERCULOSIS [None]
